FAERS Safety Report 5599411-0 (Version None)
Quarter: 2008Q1

REPORT INFORMATION
  Report Type: 
  Country: None (occurrence: None)
  Receive Date: 20080122
  Receipt Date: 20080110
  Transmission Date: 20080703
  Serious: Yes (Other)
  Sender: FDA-Public Use
  Company Number: US-PFIZER INC-2008004652

PATIENT
  Sex: Male

DRUGS (2)
  1. CHANTIX [Suspect]
  2. RISPERDAL [Concomitant]

REACTIONS (3)
  - AGITATION [None]
  - ANXIETY [None]
  - PARANOIA [None]
